FAERS Safety Report 4703946-X (Version None)
Quarter: 2005Q2

REPORT INFORMATION
  Report Type: 
  Country: None (occurrence: None)
  Receive Date: 20050628
  Receipt Date: 20050615
  Transmission Date: 20051028
  Serious: Yes (Hospitalization, Disabling, Other)
  Sender: FDA-Public Use
  Company Number: USA030741527

PATIENT
  Age: 36 Year
  Sex: Female
  Weight: 74 kg

DRUGS (2)
  1. ZYPREXA [Suspect]
     Indication: SCHIZOPHRENIA
     Dosage: 5 MG
     Dates: start: 20010201, end: 20040101
  2. DEPAKOTE [Concomitant]

REACTIONS (6)
  - CONDITION AGGRAVATED [None]
  - DYSPHONIA [None]
  - NERVOUS SYSTEM DISORDER [None]
  - RETINITIS PIGMENTOSA [None]
  - SPEECH DISORDER [None]
  - TONGUE DISORDER [None]
